FAERS Safety Report 8881030 (Version 2)
Quarter: 2012Q4

REPORT INFORMATION
  Report Type: 
  Country: NL (occurrence: NL)
  Receive Date: 20121101
  Receipt Date: 20121116
  Transmission Date: 20130627
  Serious: Yes (Death, Life-Threatening)
  Sender: FDA-Public Use
  Company Number: NL-009507513-1210NLD011786

PATIENT
  Age: 56 Year
  Sex: Female

DRUGS (3)
  1. CELESTONE [Suspect]
     Indication: SKIN DISORDER
     Dosage: 1 mg, qd
     Route: 048
     Dates: start: 20120404
  2. CHOLECALCIFEROL [Suspect]
     Indication: OSTEOPOROSIS
     Dosage: 50000 IU, qm
     Dates: start: 20120720, end: 20120910
  3. ELOCON [Concomitant]
     Dosage: 1 DF, qd
     Dates: start: 20120501, end: 20120910

REACTIONS (1)
  - Hypercalcaemia [Fatal]
